FAERS Safety Report 15247289 (Version 2)
Quarter: 2018Q4

REPORT INFORMATION
  Report Type: Spontaneous
  Country: DE (occurrence: DE)
  Receive Date: 20180807
  Receipt Date: 20180823
  Transmission Date: 20190204
  Serious: Yes (Other)
  Sender: FDA-Public Use
  Company Number: DE-SUN PHARMACEUTICAL INDUSTRIES LTD-2018RR-180614

PATIENT
  Age: 69 Year
  Sex: Male

DRUGS (3)
  1. PANTOPRAZOLE SODIUM. [Concomitant]
     Active Substance: PANTOPRAZOLE SODIUM
     Indication: ABDOMINAL DISCOMFORT
     Route: 065
  2. VALSARTAN BASICS 80 MG FILMTABLETTEN [Suspect]
     Active Substance: VALSARTAN
     Indication: BLOOD PRESSURE INCREASED
     Dosage: 1 DF, DAILY
     Route: 065
  3. IBUPROFEN 600 MG [Concomitant]
     Active Substance: IBUPROFEN
     Indication: BREAST PAIN
     Route: 065

REACTIONS (17)
  - Liver injury [Unknown]
  - Dizziness [Unknown]
  - Fatigue [Unknown]
  - Product substitution issue [Unknown]
  - Chest pain [Unknown]
  - Renal disorder [Unknown]
  - Anxiety [Unknown]
  - Dry mouth [Unknown]
  - Peripheral swelling [Unknown]
  - Malaise [Unknown]
  - Diarrhoea [Unknown]
  - Tremor [Unknown]
  - Body height decreased [Unknown]
  - Dysgeusia [Unknown]
  - Weight decreased [Unknown]
  - Gynaecomastia [Unknown]
  - Prostatomegaly [Unknown]

NARRATIVE: CASE EVENT DATE: 201712
